FAERS Safety Report 14825993 (Version 1)
Quarter: 2018Q2

REPORT INFORMATION
  Report Type: Spontaneous
  Country: DE (occurrence: DE)
  Receive Date: 20180430
  Receipt Date: 20180430
  Transmission Date: 20180711
  Serious: Yes (Hospitalization)
  Sender: FDA-Public Use
  Company Number: DE-IBIGEN-2018.03932

PATIENT
  Age: 89 Year
  Sex: Female

DRUGS (10)
  1. AMPICILLIN/SULBACTAM [Suspect]
     Active Substance: AMPICILLIN SODIUM\SULBACTAM SODIUM
     Dosage: 875-125 MG, 1-0-1-0
  2. LEVOTHYROXIN [Suspect]
     Active Substance: LEVOTHYROXINE
     Dosage: 150 UG, 1-0-0-0
  3. ACETYLSALICYLSAEURE [Concomitant]
     Active Substance: ASPIRIN
     Dosage: 100 MG, 0-1-0-0
  4. SIMVASTATIN. [Concomitant]
     Active Substance: SIMVASTATIN
     Dosage: 20 MG, 0-0-0-1
  5. ACTRAPID [Concomitant]
     Active Substance: INSULIN HUMAN
     Dosage: NK IE, NACH SCHEMA
  6. NITRENDIPINE [Concomitant]
     Active Substance: NITRENDIPINE
     Dosage: 10 MG, 1-0-0-1
  7. AMITRIPTYLIN [Concomitant]
     Active Substance: AMITRIPTYLINE
     Dosage: 50 MG, 0-0-1-0
  8. PROTAPHANE [Concomitant]
     Active Substance: INSULIN HUMAN
     Dosage: 25 IE, 0-0-0-1
  9. METOPROLOL. [Concomitant]
     Active Substance: METOPROLOL
     Dosage: 47.5 MG, 1-0-0-1
  10. MOVICOL [Concomitant]
     Active Substance: POLYETHYLENE GLYCOL 3350\POTASSIUM CHLORIDE\SODIUM BICARBONATE\SODIUM CHLORIDE

REACTIONS (4)
  - Dehydration [Unknown]
  - Drug prescribing error [Unknown]
  - Therapeutic drug monitoring analysis not performed [Unknown]
  - Diarrhoea [Unknown]

NARRATIVE: CASE EVENT DATE: 20150919
